FAERS Safety Report 8827223 (Version 1)
Quarter: 2012Q4

REPORT INFORMATION
  Report Type: 
  Country: US (occurrence: US)
  Receive Date: 20121008
  Receipt Date: 20121008
  Transmission Date: 20130627
  Serious: No
  Sender: FDA-Public Use
  Company Number: US-009507513-1210USA002219

PATIENT
  Age: 48 Year
  Sex: Female

DRUGS (1)
  1. SAPHRIS [Suspect]
     Indication: BIPOLAR DISORDER
     Dosage: 10 mg, bid
     Route: 060
     Dates: end: 2012

REACTIONS (3)
  - Restless legs syndrome [Unknown]
  - Anxiety [Unknown]
  - Muscle twitching [Unknown]
